FAERS Safety Report 5162424-7 (Version None)
Quarter: 2006Q4

REPORT INFORMATION
  Report Type: 
  Country: None (occurrence: None)
  Receive Date: 20061128
  Receipt Date: 20061128
  Transmission Date: 20070319
  Serious: Yes (Other)
  Sender: FDA-Public Use
  Company Number: None

PATIENT
  Age: 80 Year
  Sex: Male
  Weight: 83.0083 kg

DRUGS (4)
  1. DOXYCYCLINE [Suspect]
     Indication: TOOTH INFECTION
     Dosage: 100 MG PO HS
     Route: 048
  2. ACETAMINOPHEN [Concomitant]
  3. AMITRIP [Concomitant]
  4. TRAZODONE HCL [Concomitant]

REACTIONS (2)
  - RASH PRURITIC [None]
  - SKIN HYPERPIGMENTATION [None]
